FAERS Safety Report 5737548-3 (Version None)
Quarter: 2008Q2

REPORT INFORMATION
  Report Type: 
  Country: None (occurrence: None)
  Receive Date: 20080514
  Receipt Date: 20080512
  Transmission Date: 20081010
  Serious: Yes (Other)
  Sender: FDA-Public Use
  Company Number: A0706344A

PATIENT
  Age: 61 Year
  Sex: Female

DRUGS (1)
  1. ALLI [Suspect]

REACTIONS (9)
  - ASTHENIA [None]
  - DEPRESSED MOOD [None]
  - DRUG INEFFECTIVE [None]
  - INFLUENZA [None]
  - MALAISE [None]
  - MIGRAINE [None]
  - PNEUMONIA [None]
  - WEIGHT FLUCTUATION [None]
  - WEIGHT INCREASED [None]
